FAERS Safety Report 25675829 (Version 1)
Quarter: 2025Q3

REPORT INFORMATION
  Report Type: Report from Study
  Country: US (occurrence: US)
  Receive Date: 20250813
  Receipt Date: 20250813
  Transmission Date: 20251021
  Serious: Yes (Hospitalization)
  Sender: ESTEVE
  Company Number: US-Esteve Pharmaceuticals SA-2182400

PATIENT
  Age: 49 Year
  Sex: Female

DRUGS (64)
  1. LYSODREN [Suspect]
     Active Substance: MITOTANE
     Indication: Adrenal gland cancer
     Dates: start: 20240117
  2. LYSODREN [Suspect]
     Active Substance: MITOTANE
     Dates: start: 20240117
  3. ONDANSETRON [Concomitant]
     Active Substance: ONDANSETRON
  4. DULOXETINE [Concomitant]
     Active Substance: DULOXETINE
  5. BUSPIRONE [Concomitant]
     Active Substance: BUSPIRONE HYDROCHLORIDE
  6. BUSPIRONE [Concomitant]
     Active Substance: BUSPIRONE HYDROCHLORIDE
  7. TRAZODONE [Concomitant]
     Active Substance: TRAZODONE HYDROCHLORIDE
  8. TOPIMARATE [Concomitant]
  9. SULFACETAMID LOT [Concomitant]
  10. PREDNISONE [Concomitant]
     Active Substance: PREDNISONE
  11. PANTOPRAZOLE [Concomitant]
     Active Substance: PANTOPRAZOLE
  12. NIFEDIPINE [Concomitant]
     Active Substance: NIFEDIPINE
  13. MIRTAZAPINE [Concomitant]
     Active Substance: MIRTAZAPINE
  14. MIRTAZAPINE [Concomitant]
     Active Substance: MIRTAZAPINE
  15. MELOXICAM [Concomitant]
     Active Substance: MELOXICAM
  16. LOSARTAN POTASSIUM [Concomitant]
     Active Substance: LOSARTAN POTASSIUM
  17. LOSARTAN POTASSIUM [Concomitant]
     Active Substance: LOSARTAN POTASSIUM
  18. LEVOTHYROXINE [Concomitant]
     Active Substance: LEVOTHYROXINE
  19. A-HYDROCORT [Concomitant]
     Active Substance: HYDROCORTISONE SODIUM SUCCINATE
  20. HYDROCHLOROTHIAZIDE [Concomitant]
     Active Substance: HYDROCHLOROTHIAZIDE
  21. FLUDROCORTISONE [Concomitant]
     Active Substance: FLUDROCORTISONE
  22. ESZOPICLONE [Concomitant]
     Active Substance: ESZOPICLONE
  23. DULOXETINE [Concomitant]
     Active Substance: DULOXETINE
  24. CLONIDINE [Concomitant]
     Active Substance: CLONIDINE
  25. CLINDAMYCIN LOT [Concomitant]
  26. VEOZAH [Concomitant]
     Active Substance: FEZOLINETANT
  27. SIMETHICONE CHW [Concomitant]
  28. ROSUVASTATIN [Concomitant]
     Active Substance: ROSUVASTATIN
  29. RESTASIS [Concomitant]
     Active Substance: CYCLOSPORINE
  30. PROCHLORPER [Concomitant]
  31. POT CL MICRO [Concomitant]
  32. PANTOPRAZOLE [Concomitant]
     Active Substance: PANTOPRAZOLE
  33. ONDANSETRON [Concomitant]
     Active Substance: ONDANSETRON
  34. ONDANSETRON [Concomitant]
     Active Substance: ONDANSETRON
  35. OLANZAPINE [Concomitant]
     Active Substance: OLANZAPINE
  36. OLANZAPINE [Concomitant]
     Active Substance: OLANZAPINE
  37. MORPHINE SULFATE [Concomitant]
     Active Substance: MORPHINE SULFATE
  38. MORPHINE SULFATE [Concomitant]
     Active Substance: MORPHINE SULFATE
  39. METOCLOPRAMIDE [Concomitant]
     Active Substance: METOCLOPRAMIDE
  40. METFORMIN HYDROCHLORIDE [Concomitant]
     Active Substance: METFORMIN HYDROCHLORIDE
  41. METFORMIN TAB 1000 ER [Concomitant]
  42. MELOXICAM [Concomitant]
     Active Substance: MELOXICAM
  43. LOSARTAN POTASSIUM [Concomitant]
     Active Substance: LOSARTAN POTASSIUM
  44. LORAZEPAM [Concomitant]
     Active Substance: LORAZEPAM
  45. LORAZEPAM [Concomitant]
     Active Substance: LORAZEPAM
  46. KETOROLAC [Concomitant]
     Active Substance: KETOROLAC TROMETHAMINE
  47. JANUMET XR TAB 100-1000 [Concomitant]
  48. ISTURISA [Concomitant]
     Active Substance: OSILODROSTAT PHOSPHATE
  49. A-HYDROCORT [Concomitant]
     Active Substance: HYDROCORTISONE SODIUM SUCCINATE
  50. A-HYDROCORT [Concomitant]
     Active Substance: HYDROCORTISONE SODIUM SUCCINATE
  51. HYDROCHLOROTHIAZIDE [Concomitant]
     Active Substance: HYDROCHLOROTHIAZIDE
  52. HYDROCHLOROTHIAZIDE [Concomitant]
     Active Substance: HYDROCHLOROTHIAZIDE
  53. HYDRALAZINE [Concomitant]
     Active Substance: HYDRALAZINE HYDROCHLORIDE
  54. GLYCOLAX POW 3350 NF [Concomitant]
  55. FLUDROCORT POW ACETATE [Concomitant]
  56. ESCITALOPRAM [Concomitant]
     Active Substance: ESCITALOPRAM OXALATE
  57. DULOXETINE [Concomitant]
     Active Substance: DULOXETINE
  58. CYCLOSPORINE [Concomitant]
     Active Substance: CYCLOSPORINE
  59. CLONIDINE [Concomitant]
     Active Substance: CLONIDINE
  60. CARVEDILOL [Concomitant]
     Active Substance: CARVEDILOL
  61. BUT/APAP/CAF TAB [Concomitant]
  62. BENZONATATE [Concomitant]
     Active Substance: BENZONATATE
  63. LYSODREN [Suspect]
     Active Substance: MITOTANE
  64. LYSODREN [Suspect]
     Active Substance: MITOTANE

REACTIONS (4)
  - Adrenocortical insufficiency acute [Not Recovered/Not Resolved]
  - Drug level decreased [Unknown]
  - Drug level increased [Unknown]
  - Product dose omission issue [Unknown]

NARRATIVE: CASE EVENT DATE: 20250409
